FAERS Safety Report 24304589 (Version 1)
Quarter: 2024Q3

REPORT INFORMATION
  Report Type: Other
  Country: US (occurrence: US)
  Receive Date: 20240910
  Receipt Date: 20240910
  Transmission Date: 20241016
  Serious: No
  Sender: SIGMA TAU
  Company Number: US-LEADIANT BIOSCIENCES, INC.-2023STPI000375

PATIENT
  Sex: Female

DRUGS (1)
  1. MATULANE [Suspect]
     Active Substance: PROCARBAZINE HYDROCHLORIDE
     Indication: Non-Hodgkin^s lymphoma
     Dosage: 50 MILLIGRAM, TAKE 4 CAPSULES (200 MG TOTAL) NIGHTLY AT BEDTIME
     Route: 048
     Dates: start: 20231007

REACTIONS (3)
  - Hypertension [Unknown]
  - Diarrhoea [Recovered/Resolved]
  - Hemiparesis [Unknown]
